FAERS Safety Report 11045221 (Version 4)
Quarter: 2015Q3

REPORT INFORMATION
  Report Type: Spontaneous
  Country: BE (occurrence: BE)
  Receive Date: 20150417
  Receipt Date: 20150710
  Transmission Date: 20151125
  Serious: Yes (Other)
  Sender: FDA-Public Use
  Company Number: BE-AMGEN-BELSP2015036703

PATIENT
  Age: 81 Year
  Sex: Female
  Weight: 80 kg

DRUGS (6)
  1. LISINOPRIL AND HYDROCHLOROTHIAZIDE [Concomitant]
     Active Substance: HYDROCHLOROTHIAZIDE\LISINOPRIL
  2. BISOPROLOL [Concomitant]
     Active Substance: BISOPROLOL
  3. PROLIA [Suspect]
     Active Substance: DENOSUMAB
     Indication: OSTEOPOROSIS
     Dosage: 60 MG, Q6MO
     Route: 065
     Dates: start: 201306
  4. ARTECHOL [Concomitant]
  5. CLONAZEPAM. [Concomitant]
     Active Substance: CLONAZEPAM
  6. CALCIUM/VITAMIN D                  /01204201/ [Concomitant]

REACTIONS (3)
  - Fall [Unknown]
  - Exercise lack of [Unknown]
  - Thoracic vertebral fracture [Not Recovered/Not Resolved]

NARRATIVE: CASE EVENT DATE: 201411
